FAERS Safety Report 6541992-4 (Version None)
Quarter: 2010Q1

REPORT INFORMATION
  Report Type: 
  Country: None (occurrence: None)
  Receive Date: 20100119
  Receipt Date: 20100104
  Transmission Date: 20100710
  Serious: Yes (Hospitalization)
  Sender: FDA-Public Use
  Company Number: US-ROCHE-523101

PATIENT
  Sex: Male

DRUGS (11)
  1. BEVACIZUMAB [Suspect]
     Route: 041
     Dates: start: 20070716
  2. BEVACIZUMAB [Suspect]
     Dosage: 280 MG, 1 IN 2 WKS
     Route: 041
     Dates: start: 20070730, end: 20070730
  3. OXALIPLATIN [Suspect]
     Dosage: UNK, UNK
     Route: 042
     Dates: start: 20070716
  4. OXALIPLATIN [Suspect]
     Dosage: 140 MG/M2, 1 IN 2 WKS
     Route: 042
     Dates: start: 20070730, end: 20070730
  5. TS-1 [Suspect]
     Dosage: UNK, UNK
     Route: 048
     Dates: start: 20070716
  6. TS-1 [Suspect]
     Dosage: 60 MG, UNK
     Route: 048
     Dates: start: 20070730, end: 20070805
  7. SIMETHICONE [Concomitant]
     Indication: CONSTIPATION
     Route: 048
  8. MS CONTIN [Concomitant]
     Indication: PAIN
     Route: 048
     Dates: start: 20070730
  9. DARBEPOETIN ALFA [Concomitant]
     Route: 058
     Dates: start: 20070730, end: 20070730
  10. LACTULOSE [Concomitant]
     Indication: CONSTIPATION
     Route: 048
  11. COLACE [Concomitant]
     Indication: CONSTIPATION
     Route: 048

REACTIONS (4)
  - DYSPHAGIA [None]
  - PLEURAL EFFUSION [None]
  - PNEUMONIA FUNGAL [None]
  - PNEUMOPERICARDIUM [None]
